FAERS Safety Report 11193466 (Version 1)
Quarter: 2015Q2

REPORT INFORMATION
  Report Type: Report from Study
  Country: CA (occurrence: CA)
  Receive Date: 20150616
  Receipt Date: 20150616
  Transmission Date: 20150821
  Serious: Yes (Other)
  Sender: FDA-Public Use
  Company Number: CA-ABBVIE-15P-028-1348065-00

PATIENT
  Age: 82 Year
  Sex: Male
  Weight: 81.72 kg

DRUGS (2)
  1. ROSUVASTATIN CALCIUM. [Concomitant]
     Active Substance: ROSUVASTATIN CALCIUM
     Indication: PRODUCT USED FOR UNKNOWN INDICATION
     Route: 065
  2. LUPRON DEPOT [Suspect]
     Active Substance: LEUPROLIDE ACETATE
     Indication: PROSTATE CANCER
     Route: 030
     Dates: start: 20060307

REACTIONS (3)
  - Bone pain [Not Recovered/Not Resolved]
  - Bone neoplasm [Unknown]
  - Fall [Unknown]

NARRATIVE: CASE EVENT DATE: 201411
